FAERS Safety Report 18567944 (Version 1)
Quarter: 2020Q4

REPORT INFORMATION
  Report Type: Spontaneous
  Country: CN (occurrence: CN)
  Receive Date: 20201202
  Receipt Date: 20201202
  Transmission Date: 20210114
  Serious: Yes (Hospitalization, Other)
  Sender: FDA-Public Use
  Company Number: CN-CHEPLA-C20203639

PATIENT
  Age: 39 Year
  Sex: Male

DRUGS (3)
  1. CALCITRIOLE CAPSULES [Concomitant]
     Indication: PARATHYROIDECTOMY
     Dosage: 0.25 UG, ONCE A DAY
     Route: 048
  2. AMLODIPINE BESYLATE. [Concomitant]
     Active Substance: AMLODIPINE BESYLATE
     Indication: HYPERTENSION
     Route: 048
  3. ORLISTAT. [Suspect]
     Active Substance: ORLISTAT
     Indication: WEIGHT DECREASED
     Dosage: 0,12 G THRICE DAILY
     Route: 048
     Dates: start: 2019, end: 2019

REACTIONS (1)
  - Rhabdomyolysis [Recovering/Resolving]

NARRATIVE: CASE EVENT DATE: 201912
